FAERS Safety Report 17147413 (Version 1)
Quarter: 2019Q4

REPORT INFORMATION
  Report Type: Report from Study
  Country: US (occurrence: US)
  Receive Date: 20191212
  Receipt Date: 20191212
  Transmission Date: 20200122
  Serious: Yes (Hospitalization)
  Sender: FDA-Public Use
  Company Number: US-EISAI MEDICAL RESEARCH-EC-2019-064907

PATIENT
  Sex: Female
  Weight: 74 kg

DRUGS (3)
  1. PROTONIX [Concomitant]
     Active Substance: PANTOPRAZOLE SODIUM
  2. LENVIMA [Suspect]
     Active Substance: LENVATINIB
     Indication: HEPATOCELLULAR CARCINOMA
     Route: 048
     Dates: start: 20191025, end: 201911
  3. GABAPENTIN. [Concomitant]
     Active Substance: GABAPENTIN

REACTIONS (7)
  - Gastroenteritis [Unknown]
  - Inappropriate schedule of product administration [Unknown]
  - Blood potassium abnormal [Unknown]
  - Neuropathy peripheral [Unknown]
  - Hypertension [Unknown]
  - Haematemesis [Unknown]
  - Hepatic pain [Unknown]

NARRATIVE: CASE EVENT DATE: 2019
